FAERS Safety Report 14280665 (Version 1)
Quarter: 2017Q4

REPORT INFORMATION
  Report Type: Spontaneous
  Country: US (occurrence: None)
  Receive Date: 20171212
  Receipt Date: 20171212
  Transmission Date: 20180321
  Serious: Yes (Other)
  Sender: FDA-Public Use
  Company Number: None

PATIENT
  Age: 57 Year
  Sex: Female

DRUGS (1)
  1. METHYLPHENIDATE ER 36MG TABLET [Suspect]
     Active Substance: METHYLPHENIDATE HYDROCHLORIDE
     Indication: BRAIN INJURY
     Route: 048
     Dates: start: 20171125

REACTIONS (4)
  - Headache [None]
  - Medication residue present [None]
  - Lethargy [None]
  - Sleep disorder [None]

NARRATIVE: CASE EVENT DATE: 20171201
